FAERS Safety Report 5224201-8 (Version None)
Quarter: 2007Q1

REPORT INFORMATION
  Report Type: 
  Country: None (occurrence: None)
  Receive Date: 20070130
  Receipt Date: 20070117
  Transmission Date: 20070707
  Serious: Yes (Hospitalization)
  Sender: FDA-Public Use
  Company Number: US-SHR-US-2006-025210

PATIENT
  Age: 53 Year
  Sex: Female
  Weight: 81.633 kg

DRUGS (6)
  1. BETASERON [Suspect]
     Indication: RELAPSING-REMITTING MULTIPLE SCLEROSIS
     Dosage: 8 MIU, EVERY 2D
     Route: 058
     Dates: start: 19940808
  2. RITALIN [Suspect]
     Indication: FATIGUE
     Dosage: 10 MG, 2X/DAY
  3. CARDIAZEM [Concomitant]
     Dosage: 240 MG, 1X/DAY
     Route: 048
     Dates: start: 19990101
  4. ATENOLOL [Concomitant]
     Dosage: 25 MG, 2X/DAY
     Route: 048
     Dates: start: 19990101
  5. IMDUR [Concomitant]
     Dosage: 30 MG, 1X/DAY
     Route: 048
     Dates: start: 19990101
  6. LESCOL [Concomitant]
     Dosage: 80 MG, 1X/DAY
     Route: 048
     Dates: start: 19990101

REACTIONS (1)
  - MYOCARDIAL INFARCTION [None]
